FAERS Safety Report 14779271 (Version 2)
Quarter: 2018Q3

REPORT INFORMATION
  Report Type: Spontaneous
  Country: AU (occurrence: AU)
  Receive Date: 20180419
  Receipt Date: 20180726
  Transmission Date: 20181010
  Serious: Yes (Life-Threatening)
  Sender: FDA-Public Use
  Company Number: AU-PFIZER INC-2018124025

PATIENT
  Sex: Female
  Weight: 57 kg

DRUGS (43)
  1. CALTRATE [Concomitant]
     Active Substance: CALCIUM CARBONATE
     Dosage: 1500 MG, 2X/DAY
     Route: 048
  2. MEGAFOL [Concomitant]
     Active Substance: FOLIC ACID
     Dosage: 5MG, DAILY EVERY DAY EXCEPT TUESDAY
     Route: 048
  3. ONDANSETRON ODT DRLA [Concomitant]
     Active Substance: ONDANSETRON
     Dosage: 8 MG, ONE TABLET AS NEEDED
     Route: 048
  4. LYRICA [Suspect]
     Active Substance: PREGABALIN
     Indication: SCIATICA
     Dosage: UNK
     Route: 048
     Dates: start: 2013
  5. OXYCONTIN [Concomitant]
     Active Substance: OXYCODONE HYDROCHLORIDE
     Dosage: 15 MG, 2X/DAY
  6. SERETIDE MDI [Concomitant]
     Active Substance: FLUTICASONE PROPIONATE\SALMETEROL XINAFOATE
     Dosage: UNK UNK, 250MCG?25MCG PER INHALATION 2X/DAY
     Route: 055
  7. SYSTANE (HYPROMELLOSE 2910 (4000 MPA.S)) [Concomitant]
     Active Substance: HYPROMELLOSE 2910 (4000 MPA.S)
     Indication: DRY EYE
     Dosage: UNK UNK, ONE TO TWO DROPS AS NEEDED
  8. ALLEGRON [Concomitant]
     Dosage: 10 MG, HALF A TABLET AT NIGHT
     Route: 048
  9. L?TRYPTOPHAN [Concomitant]
     Active Substance: TRYPTOPHAN
     Dosage: UNK, QUATER TEASPOON AT NIGHT
     Route: 048
  10. ONDANSETRON ODT DRLA [Concomitant]
     Active Substance: ONDANSETRON
     Dosage: UNK
  11. PANADOL [Concomitant]
     Active Substance: ACETAMINOPHEN
     Dosage: TWO TABLETS 2X/DAY
     Route: 048
  12. SANDRENA [Concomitant]
     Active Substance: ESTRADIOL
     Dosage: ONCE APPLICATION EVERY ALTERNATE DAY
     Route: 061
  13. SERETIDE [Concomitant]
     Active Substance: FLUTICASONE PROPIONATE\SALMETEROL XINAFOATE
     Dosage: UNK UNK, 250MCG?50MCG PER INHALATION 2X/DAY
     Route: 055
  14. STEMETIL /00013301/ [Concomitant]
     Active Substance: PROCHLORPERAZINE
     Dosage: UNK UNK, ONE TO TWO TABLET EVERY 6 HOURS AS NEEDED
     Route: 048
  15. LYRICA [Suspect]
     Active Substance: PREGABALIN
     Dosage: UNK, 2X/DAY
     Route: 048
     Dates: start: 2011
  16. LYRICA [Suspect]
     Active Substance: PREGABALIN
     Dosage: UNK, 2X/DAY
     Route: 048
     Dates: start: 201406
  17. LASIX [Concomitant]
     Active Substance: FUROSEMIDE
     Dosage: 2 TABLETS IN THE MORNING
     Route: 048
  18. OPTIVE ADVANCED [Concomitant]
     Indication: DRY EYE
     Dosage: ONE DROP  TO BOTH SIDES AS REQUIRED
  19. PLAQUENIL [Concomitant]
     Active Substance: HYDROXYCHLOROQUINE SULFATE
     Dosage: 200 MG, ONE TABLET 2X/DAY
     Route: 048
  20. RIVOTRIL [Concomitant]
     Active Substance: CLONAZEPAM
     Dosage: 0.5 MG, 1X/DAY AT NIGHT
     Route: 048
  21. LYRICA [Suspect]
     Active Substance: PREGABALIN
     Indication: BACK PAIN
     Dosage: UNK
     Route: 048
     Dates: start: 1990
  22. METHOTREXATE SODIUM. [Concomitant]
     Active Substance: METHOTREXATE SODIUM
     Dosage: 25 MG, WEEKLY
  23. ALEPAM [Concomitant]
     Active Substance: OXAZEPAM
     Dosage: 15 MG, HALF TO ONE TABLET AS NEEDED
     Route: 048
  24. GABAPENTIN. [Concomitant]
     Active Substance: GABAPENTIN
     Dosage: ONE CAPSULE IN THE MORNING AND 3 CAPSULE AT NIGHT
     Route: 048
  25. NEXIUM [Concomitant]
     Active Substance: ESOMEPRAZOLE MAGNESIUM
     Dosage: 40 MG, 1X/DAY
     Route: 048
  26. OXYCONTIN [Concomitant]
     Active Substance: OXYCODONE HYDROCHLORIDE
     Dosage: 10 MG, 2X/DAY
     Route: 048
  27. SLOW K [Concomitant]
     Active Substance: POTASSIUM CHLORIDE
     Dosage: 600 MG, 2X/DAY
     Route: 048
  28. SPIRIVA [Concomitant]
     Active Substance: TIOTROPIUM BROMIDE MONOHYDRATE
     Dosage: 18 UG, ONE INHALATION DAILY AS NEEDED
     Route: 055
  29. VENTOLIN [Concomitant]
     Active Substance: ALBUTEROL SULFATE
     Dosage: 100 UG, TWO INHALATION EVERY 4 HOURS  AS NEEDED
  30. XANAX [Concomitant]
     Active Substance: ALPRAZOLAM
  31. ASPIRIN. [Concomitant]
     Active Substance: ASPIRIN
     Dosage: 100 MG, 1 TAB DAILY
     Route: 048
  32. VITAMIN B [Concomitant]
     Active Substance: VITAMIN B
     Dosage: UNK UNK, DAILY M.D.U
     Route: 048
  33. KENACOMB OTIC [Concomitant]
     Dosage: UNK UNK, 2X/DAY
     Route: 061
  34. PANADEINE FORTE [Concomitant]
     Active Substance: ACETAMINOPHEN\CODEINE PHOSPHATE
     Dosage: UNK UNK, ONE TO TWO TABLETS THREE TIMES PER DAY, AS NEEDED
     Route: 048
  35. OXYCODONE [Concomitant]
     Active Substance: OXYCODONE
     Dosage: 25 MG, 2X/DAY
  36. DIPROSONE /00008502/ [Concomitant]
     Active Substance: BETAMETHASONE SODIUM PHOSPHATE
     Dosage: UNK UNK, 2X/DAY
     Route: 061
  37. NEO B12 [Concomitant]
     Dosage: UNK, ONE INJECTION 3 MONTHLY
     Route: 030
  38. LYRICA [Suspect]
     Active Substance: PREGABALIN
     Dosage: UNK, 2X/DAY
     Route: 048
     Dates: start: 2010
  39. DBL METHOTREXATE [Concomitant]
     Dosage: 1 ML, WEEKLY
     Route: 030
  40. ENDONE [Concomitant]
     Active Substance: OXYCODONE HYDROCHLORIDE
     Dosage: 5 MG, ONE TABLET THREE TIMES DAILY AS NEEDED
     Route: 048
  41. CLOPIDOGREL [Concomitant]
     Active Substance: CLOPIDOGREL BISULFATE
     Dosage: 75 MG, DAILY
     Route: 048
  42. OMNARIS [Concomitant]
     Active Substance: CICLESONIDE
     Dosage: ONCE DAILY BOTH SIDES
     Route: 045
  43. MOCLOBEMIDE [Concomitant]
     Active Substance: MOCLOBEMIDE
     Dosage: UNK

REACTIONS (5)
  - Paraesthesia oral [Recovered/Resolved]
  - Angioedema [Recovered/Resolved]
  - Throat tightness [Recovered/Resolved]
  - Swollen tongue [Recovered/Resolved]
  - Drug intolerance [Recovered/Resolved]

NARRATIVE: CASE EVENT DATE: 1990
